FAERS Safety Report 25484681 (Version 1)
Quarter: 2025Q2

REPORT INFORMATION
  Report Type: Spontaneous
  Country: US (occurrence: None)
  Receive Date: 20250627
  Receipt Date: 20250627
  Transmission Date: 20250717
  Serious: Yes (Other)
  Sender: FDA-CTU
  Company Number: None

PATIENT
  Age: 69 Year
  Sex: Female
  Weight: 60.3 kg

DRUGS (1)
  1. POMALYST [Suspect]
     Active Substance: POMALIDOMIDE
     Indication: Plasma cell myeloma
     Dosage: 4 MG DAILY ORAL ?
     Route: 048
     Dates: start: 20250514

REACTIONS (3)
  - Back pain [None]
  - Rash [None]
  - Hyperglycaemia [None]

NARRATIVE: CASE EVENT DATE: 20250627
